FAERS Safety Report 4767425-6 (Version None)
Quarter: 2005Q3

REPORT INFORMATION
  Report Type: 
  Country: None (occurrence: None)
  Receive Date: 20050912
  Receipt Date: 20050831
  Transmission Date: 20060218
  Serious: Yes (Other)
  Sender: FDA-Public Use
  Company Number: 2005122001

PATIENT
  Sex: Male
  Weight: 72.5755 kg

DRUGS (1)
  1. ACTIFED [Suspect]
     Indication: HYPERSENSITIVITY
     Dosage: 1 TABLET ONCE A NIGHT, ORAL
     Route: 048

REACTIONS (4)
  - DISTURBANCE IN ATTENTION [None]
  - DRUG DEPENDENCE [None]
  - INSOMNIA [None]
  - SOMNOLENCE [None]
